FAERS Safety Report 8993358 (Version 1)
Quarter: 2013Q1

REPORT INFORMATION
  Report Type: Report from Study
  Country: US (occurrence: US)
  Receive Date: 20130102
  Receipt Date: 20130102
  Transmission Date: 20140127
  Serious: Yes (Congenital Anomaly, Other)
  Sender: FDA-Public Use
  Company Number: US-PFIZER INC-2012331260

PATIENT
  Sex: 0
  Weight: 2.41 kg

DRUGS (4)
  1. ADRIAMYCIN [Suspect]
     Indication: BREAST CANCER STAGE III
     Dosage: UNK
     Route: 064
  2. PACLITAXEL [Suspect]
     Indication: BREAST CANCER STAGE III
     Dosage: UNK
     Route: 064
  3. DOCETAXEL [Suspect]
     Indication: BREAST CANCER STAGE III
     Dosage: UNK
     Route: 064
  4. CYTOXAN [Suspect]
     Indication: BREAST CANCER STAGE III
     Dosage: UNK
     Route: 064

REACTIONS (3)
  - Maternal exposure timing unspecified [Unknown]
  - Neutropenia neonatal [Unknown]
  - Pyloric stenosis [Recovered/Resolved]
